FAERS Safety Report 10347581 (Version 1)
Quarter: 2014Q3

REPORT INFORMATION
  Report Type: Spontaneous
  Country: US (occurrence: None)
  Receive Date: 20140725
  Receipt Date: 20140725
  Transmission Date: 20150326
  Serious: Yes (Other)
  Sender: FDA-Public Use
  Company Number: 2014SGN00657

PATIENT
  Age: 70 Year
  Sex: Male

DRUGS (1)
  1. ADCETRIS [Suspect]
     Active Substance: BRENTUXIMAB VEDOTIN
     Indication: NON-HODGKIN^S LYMPHOMA
     Dosage: UNK UNK, Q21D, INTRAVENOUS
     Route: 042
     Dates: start: 20140505

REACTIONS (5)
  - C-reactive protein increased [None]
  - Fatigue [None]
  - Pyrexia [None]
  - Malaise [None]
  - Off label use [None]

NARRATIVE: CASE EVENT DATE: 20140505
